FAERS Safety Report 9780579 (Version 1)
Quarter: 2013Q4

REPORT INFORMATION
  Report Type: Spontaneous
  Country: US (occurrence: US)
  Receive Date: 20131224
  Receipt Date: 20131224
  Transmission Date: 20140711
  Serious: No
  Sender: FDA-Public Use
  Company Number: US-009507513-1312USA010010

PATIENT
  Sex: 0

DRUGS (4)
  1. ZETIA [Suspect]
     Dosage: UNK
     Route: 048
     Dates: start: 2013, end: 2013
  2. ZETIA [Suspect]
     Dosage: UNK
     Route: 048
     Dates: start: 2013, end: 2013
  3. DILANTIN [Concomitant]
     Indication: CONVULSION
     Dosage: UNK, QD
  4. NEURONTIN [Concomitant]
     Indication: CONVULSION
     Dosage: UNK, QD

REACTIONS (4)
  - Heat stroke [Unknown]
  - Hyperhidrosis [Unknown]
  - Blood pressure decreased [Unknown]
  - Amnesia [Unknown]
